FAERS Safety Report 5837768-3 (Version None)
Quarter: 2008Q3

REPORT INFORMATION
  Report Type: 
  Country: None (occurrence: None)
  Receive Date: 20080806
  Receipt Date: 20080731
  Transmission Date: 20090109
  Serious: Yes (Death, Hospitalization, Other)
  Sender: FDA-Public Use
  Company Number: 163-21880-08060730

PATIENT
  Age: 78 Year
  Sex: Female

DRUGS (13)
  1. REVLIMID [Suspect]
     Indication: MULTIPLE MYELOMA
     Dosage: 10 MG, TIW (M, W, F) AFTER DIALYSIS, ORAL 5 MG, ORAL
     Route: 048
     Dates: start: 20080108, end: 20080301
  2. REVLIMID [Suspect]
     Indication: MULTIPLE MYELOMA
     Dosage: 10 MG, TIW (M, W, F) AFTER DIALYSIS, ORAL 5 MG, ORAL
     Route: 048
     Dates: start: 20080328
  3. DECADRON [Concomitant]
  4. VICODIN [Concomitant]
  5. FENTANYL-100 [Concomitant]
  6. MEGESTROL ACETATE [Concomitant]
  7. ZOLPIDEM TARTRATE [Concomitant]
  8. FLUTICASONE PROPIONATE [Concomitant]
  9. METOPROLOL TARTRATE [Concomitant]
  10. SIMVASTATIN [Concomitant]
  11. HYDRALAZINE HCL [Concomitant]
  12. PROCHLORPERAZINE MALEATE [Concomitant]
  13. RENAGEL [Concomitant]

REACTIONS (7)
  - CARDIO-RESPIRATORY ARREST [None]
  - FALL [None]
  - GENERAL PHYSICAL HEALTH DETERIORATION [None]
  - MALIGNANT NEOPLASM PROGRESSION [None]
  - MENTAL STATUS CHANGES [None]
  - MULTIPLE MYELOMA [None]
  - PANCYTOPENIA [None]
